FAERS Safety Report 7809098-1 (Version None)
Quarter: 2011Q4

REPORT INFORMATION
  Report Type: 
  Country: None (occurrence: None)
  Receive Date: 20111012
  Receipt Date: 20111003
  Transmission Date: 20120403
  Serious: Yes (Hospitalization)
  Sender: FDA-Public Use
  Company Number: AT-JNJFOC-20111001059

PATIENT
  Age: 60 Year
  Sex: Female

DRUGS (16)
  1. RISPERDAL [Suspect]
     Indication: PRODUCT USED FOR UNKNOWN INDICATION
     Route: 065
     Dates: start: 20110820, end: 20110912
  2. RISPERDAL [Suspect]
     Route: 065
     Dates: start: 20110917
  3. RISPERDAL [Suspect]
     Route: 065
     Dates: start: 20110913, end: 20110916
  4. RISPERDAL [Suspect]
     Dosage: 2-6MG
     Route: 065
     Dates: start: 20110814, end: 20110819
  5. MIRTAZAPINE [Suspect]
     Indication: PRODUCT USED FOR UNKNOWN INDICATION
     Route: 065
     Dates: start: 20110701, end: 20110912
  6. CIRCADIN [Suspect]
     Indication: PRODUCT USED FOR UNKNOWN INDICATION
     Dosage: 2-4MG
     Route: 065
     Dates: start: 20110801, end: 20110912
  7. LAMICTAL [Suspect]
     Route: 065
     Dates: start: 20090101, end: 20110816
  8. AKINETON [Suspect]
     Indication: PRODUCT USED FOR UNKNOWN INDICATION
     Dosage: 4-8MG
     Route: 065
     Dates: start: 20110908, end: 20110913
  9. LAMICTAL [Suspect]
     Route: 065
     Dates: start: 20110914
  10. IXEL [Suspect]
     Indication: PRODUCT USED FOR UNKNOWN INDICATION
     Dosage: 25-50MG  AE OCCURED AT 50MG
     Route: 065
     Dates: start: 20110906, end: 20110913
  11. LAMICTAL [Suspect]
     Indication: PRODUCT USED FOR UNKNOWN INDICATION
     Route: 065
     Dates: start: 20110830, end: 20110913
  12. LAMICTAL [Suspect]
     Route: 065
     Dates: start: 20110817, end: 20110829
  13. LITHIUM CARBONATE [Suspect]
     Route: 065
     Dates: start: 20090101, end: 20110912
  14. LORAZEPAM [Suspect]
     Indication: PRODUCT USED FOR UNKNOWN INDICATION
     Dosage: 1-4MG
     Route: 065
     Dates: start: 20110813, end: 20110924
  15. LITHIUM CARBONATE [Suspect]
     Indication: PRODUCT USED FOR UNKNOWN INDICATION
     Route: 065
     Dates: start: 20110913
  16. DOMINAL [Suspect]
     Indication: PRODUCT USED FOR UNKNOWN INDICATION
     Dosage: 80-160MG
     Route: 065
     Dates: start: 20110818

REACTIONS (8)
  - CHILLS [None]
  - OEDEMA PERIPHERAL [None]
  - ATAXIA [None]
  - EYELID OEDEMA [None]
  - DELIRIUM [None]
  - TREMOR [None]
  - SEDATION [None]
  - RESTLESSNESS [None]
